FAERS Safety Report 12185815 (Version 2)
Quarter: 2016Q1

REPORT INFORMATION
  Report Type: Spontaneous
  Country: CN (occurrence: CN)
  Receive Date: 20160316
  Receipt Date: 20160321
  Transmission Date: 20160526
  Serious: Yes (Other)
  Sender: FDA-Public Use
  Company Number: CN-009507513-1603CHN005168

PATIENT

DRUGS (2)
  1. TEMODAL [Suspect]
     Active Substance: TEMOZOLOMIDE
     Dosage: EACH SINGLE ORAL DOSE WAS 150MG/(M2XD)FOR 5 CONTINUOUS DAYS,28 D WAS 1 CYCLE AND A TOTAL OF 6 CYCLES
     Route: 048
  2. TEMODAL [Suspect]
     Active Substance: TEMOZOLOMIDE
     Indication: GLIOBLASTOMA MULTIFORME
     Dosage: EACH SINGLE ORAL DOSE WAS 75MG/(M2 D), FOR A TOTAL OF 42 DAY
     Route: 048

REACTIONS (4)
  - Bone marrow failure [Recovered/Resolved]
  - Platelet count decreased [Recovered/Resolved]
  - White blood cell count decreased [Recovered/Resolved]
  - Haematotoxicity [Recovered/Resolved]
